FAERS Safety Report 5875457-X (Version None)
Quarter: 2008Q3

REPORT INFORMATION
  Report Type: 
  Country: None (occurrence: None)
  Receive Date: 20080904
  Receipt Date: 20080819
  Transmission Date: 20090109
  Serious: Yes (Death)
  Sender: FDA-Public Use
  Company Number: 8036579

PATIENT
  Age: 35 Year
  Sex: Female

DRUGS (2)
  1. KEPPRA [Suspect]
  2. MORPHINE [Concomitant]

REACTIONS (1)
  - DEATH [None]
